FAERS Safety Report 4320299-X (Version None)
Quarter: 2004Q1

REPORT INFORMATION
  Report Type: 
  Country: None (occurrence: None)
  Receive Date: 20040317
  Receipt Date: 20040303
  Transmission Date: 20041129
  Serious: Yes (Hospitalization, Disabling)
  Sender: FDA-Public Use
  Company Number: 2004AP00671

PATIENT
  Age: 69 Year
  Sex: Female
  Weight: 51.5 kg

DRUGS (3)
  1. ARIMIDEX [Suspect]
     Indication: BREAST CANCER
     Dosage: 1 MG DAILY PO
     Route: 048
     Dates: start: 20030731, end: 20040131
  2. RADIATION THERAPY [Concomitant]
  3. HORMONE THERAPY [Concomitant]

REACTIONS (9)
  - ANOREXIA [None]
  - C-REACTIVE PROTEIN INCREASED [None]
  - FATIGUE [None]
  - LUNG INFILTRATION [None]
  - OESTROGEN RECEPTOR ASSAY POSITIVE [None]
  - PNEUMONIA [None]
  - PROGESTERONE RECEPTOR ASSAY POSITIVE [None]
  - PYREXIA [None]
  - WEIGHT DECREASED [None]
